FAERS Safety Report 7161956-X (Version None)
Quarter: 2010Q4

REPORT INFORMATION
  Report Type: 
  Country: None (occurrence: None)
  Receive Date: 20101215
  Receipt Date: 20100727
  Transmission Date: 20110411
  Serious: Yes (Other)
  Sender: FDA-Public Use
  Company Number: US-PFIZER INC-2010081231

PATIENT
  Sex: Female
  Weight: 65.76 kg

DRUGS (1)
  1. LYRICA [Suspect]
     Indication: TRIGEMINAL NEURALGIA
     Dosage: 150 MG, 2X/DAY
     Route: 048
     Dates: start: 20091205

REACTIONS (6)
  - CONVULSION [None]
  - DEPRESSION [None]
  - DYSPEPSIA [None]
  - MUSCLE TWITCHING [None]
  - PAIN [None]
  - RESTLESS LEGS SYNDROME [None]
